FAERS Safety Report 4475104-8 (Version None)
Quarter: 2004Q3

REPORT INFORMATION
  Report Type: 
  Country: None (occurrence: None)
  Receive Date: 20040923
  Receipt Date: 20040810
  Transmission Date: 20050211
  Serious: No
  Sender: FDA-Public Use
  Company Number: USA040875067

PATIENT
  Age: 51 Year
  Sex: Female
  Weight: 65 kg

DRUGS (8)
  1. FORTEO [Suspect]
     Indication: OSTEOPOROSIS
     Dosage: 20 UG/1 DAY
     Dates: start: 20040713
  2. ACTONEL [Concomitant]
  3. VITAMIN E [Concomitant]
  4. VITAMIN D [Concomitant]
  5. CALTRATE + D [Concomitant]
  6. CALCIUM [Concomitant]
  7. TRI-ESTROGEN [Concomitant]
  8. LEVOXYL [Concomitant]

REACTIONS (3)
  - INSOMNIA [None]
  - PHARYNGOLARYNGEAL PAIN [None]
  - SWOLLEN TONGUE [None]
